FAERS Safety Report 7992056 (Version 26)
Quarter: 2020Q4

REPORT INFORMATION
  Report Type: Report from Study
  Country: CA (occurrence: CA)
  Receive Date: 20110615
  Receipt Date: 20201218
  Transmission Date: 20210114
  Serious: Yes (Hospitalization, Other)
  Sender: FDA-Public Use
  Company Number: PHHY2009CA35156

PATIENT
  Age: 42 Year
  Sex: Male

DRUGS (16)
  1. SANDOSTATIN LAR DEPOT [Suspect]
     Active Substance: OCTREOTIDE ACETATE
     Dosage: 20 MG, EVERY 3 WEEKS
     Route: 030
  2. EFFEXOR [Suspect]
     Active Substance: VENLAFAXINE HYDROCHLORIDE
     Indication: PRODUCT USED FOR UNKNOWN INDICATION
     Dosage: UNK
     Route: 065
  3. SANDOSTATIN LAR DEPOT [Suspect]
     Active Substance: OCTREOTIDE ACETATE
     Dosage: 30 MG, QMO
     Route: 030
  4. REACTINE [Concomitant]
     Indication: PRODUCT USED FOR UNKNOWN INDICATION
     Dosage: PRN (AS NEEDED)
     Route: 065
  5. SANDOSTATIN LAR DEPOT [Suspect]
     Active Substance: OCTREOTIDE ACETATE
     Dosage: 10 MG, QMO
     Route: 030
     Dates: start: 20160908
  6. SANDOSTATIN LAR DEPOT [Suspect]
     Active Substance: OCTREOTIDE ACETATE
     Dosage: 30 MG, (EVERY 4 WEEKS)
     Route: 030
     Dates: start: 20180720
  7. VENTOLINE [Concomitant]
     Active Substance: ALBUTEROL
     Indication: PRODUCT USED FOR UNKNOWN INDICATION
     Dosage: UNK (2 TO 3 TIMES PER DAY)
     Route: 065
  8. VENLAFAXINE [Suspect]
     Active Substance: VENLAFAXINE HYDROCHLORIDE
     Indication: DEPRESSION
     Dosage: UNK
     Route: 065
     Dates: start: 20151210
  9. SANDOSTATIN LAR DEPOT [Suspect]
     Active Substance: OCTREOTIDE ACETATE
     Indication: ACROMEGALY
     Dosage: 20 MG, EVERY 4 WEEKS
     Route: 030
     Dates: start: 20090813
  10. SANDOSTATIN LAR DEPOT [Suspect]
     Active Substance: OCTREOTIDE ACETATE
     Dosage: 10 MG, QMO
     Route: 030
  11. SANDOSTATIN LAR DEPOT [Suspect]
     Active Substance: OCTREOTIDE ACETATE
     Dosage: 20 MG, EVERY 4 WEEKS
     Route: 030
     Dates: start: 20110525
  12. CABERGOLINE. [Concomitant]
     Active Substance: CABERGOLINE
     Indication: PRODUCT USED FOR UNKNOWN INDICATION
     Dosage: 0.25 MG, TWO TIMES PER WEEK
     Route: 065
  13. CABERGOLINE. [Concomitant]
     Active Substance: CABERGOLINE
     Dosage: 1 MG, TWICE A WEEK
     Route: 065
     Dates: start: 201408
  14. ANDRODERM [Concomitant]
     Active Substance: TESTOSTERONE
     Indication: BLOOD TESTOSTERONE INCREASED
     Dosage: UNK
     Route: 065
  15. MORPHINE [Concomitant]
     Active Substance: MORPHINE
     Indication: PRODUCT USED FOR UNKNOWN INDICATION
     Dosage: UNK
     Route: 065
  16. SANDOSTATIN LAR DEPOT [Suspect]
     Active Substance: OCTREOTIDE ACETATE
     Dosage: 30 MG, (EVERY 3 WEEKS)
     Route: 030

REACTIONS (53)
  - Rash [Recovered/Resolved]
  - Flank pain [Recovered/Resolved]
  - Mental impairment [Unknown]
  - Diarrhoea [Recovering/Resolving]
  - Skin discolouration [Unknown]
  - Blood pressure diastolic increased [Unknown]
  - Hyperhidrosis [Unknown]
  - Proctalgia [Unknown]
  - Pruritus [Recovered/Resolved]
  - Acne [Unknown]
  - Dysgeusia [Unknown]
  - Ejection fraction decreased [Unknown]
  - Chills [Recovered/Resolved]
  - Headache [Unknown]
  - Inappropriate schedule of product administration [Unknown]
  - Hypertension [Unknown]
  - Urticaria [Unknown]
  - Anxiety [Unknown]
  - Weight increased [Unknown]
  - Proteinuria [Unknown]
  - Injection site erythema [Unknown]
  - Injection site induration [Recovering/Resolving]
  - Bronchospasm [Recovered/Resolved]
  - Nephrolithiasis [Unknown]
  - Autism spectrum disorder [Unknown]
  - Hormone level abnormal [Unknown]
  - Injection site pain [Recovered/Resolved]
  - Calculus bladder [Unknown]
  - Nasopharyngitis [Unknown]
  - Weight decreased [Unknown]
  - Anorectal discomfort [Unknown]
  - Abdominal distension [Recovering/Resolving]
  - Fatigue [Unknown]
  - Nasal congestion [Recovering/Resolving]
  - Blood growth hormone abnormal [Unknown]
  - Pain in extremity [Unknown]
  - Food craving [Unknown]
  - Blood pressure increased [Unknown]
  - Dizziness [Unknown]
  - Injection site warmth [Unknown]
  - Faeces discoloured [Unknown]
  - Heart rate decreased [Unknown]
  - Rhinorrhoea [Unknown]
  - Body temperature decreased [Unknown]
  - Injection site discolouration [Unknown]
  - Rales [Recovered/Resolved]
  - Productive cough [Unknown]
  - Stress [Unknown]
  - Back pain [Unknown]
  - Pain [Recovered/Resolved]
  - Erythema [Unknown]
  - Blister [Recovered/Resolved]
  - Constipation [Unknown]

NARRATIVE: CASE EVENT DATE: 20090815
